FAERS Safety Report 7501875-X (Version None)
Quarter: 2011Q2

REPORT INFORMATION
  Report Type: 
  Country: None (occurrence: None)
  Receive Date: 20110525
  Receipt Date: 20110511
  Transmission Date: 20111010
  Serious: Yes (Other)
  Sender: FDA-Public Use
  Company Number: US-JNJFOC-20110505455

PATIENT
  Age: 12 Year

DRUGS (2)
  1. REMICADE [Suspect]
     Route: 042
     Dates: start: 20110101
  2. REMICADE [Suspect]
     Indication: PRODUCT USED FOR UNKNOWN INDICATION
     Route: 042
     Dates: start: 20080101, end: 20110101

REACTIONS (2)
  - INFECTIOUS MONONUCLEOSIS [None]
  - HISTOPLASMOSIS [None]
